FAERS Safety Report 23351884 (Version 1)
Quarter: 2023Q4

REPORT INFORMATION
  Report Type: Spontaneous
  Country: US (occurrence: US)
  Receive Date: 20231229
  Receipt Date: 20231229
  Transmission Date: 20240110
  Serious: Yes (Other)
  Sender: FDA-Public Use
  Company Number: US-INSUD PHARMA-2312US09142

PATIENT

DRUGS (3)
  1. TESTOSTERONE [Suspect]
     Active Substance: TESTOSTERONE
     Indication: Transgender hormonal therapy
     Dosage: UNK, WEEKLY INJECTIONS
     Route: 030
     Dates: start: 2016
  2. TESTOSTERONE [Suspect]
     Active Substance: TESTOSTERONE
     Dosage: UNK
  3. ANASTROZOLE [Concomitant]
     Active Substance: ANASTROZOLE
     Indication: Transgender hormonal therapy
     Dosage: UNK
     Route: 065
     Dates: start: 2016

REACTIONS (3)
  - Endometrial adenocarcinoma [Unknown]
  - Metastases to ovary [Unknown]
  - Vaginal haemorrhage [Unknown]
